FAERS Safety Report 5113530-4 (Version None)
Quarter: 2006Q3

REPORT INFORMATION
  Report Type: 
  Country: None (occurrence: None)
  Receive Date: 20060925
  Receipt Date: 20050831
  Transmission Date: 20061208
  Serious: Yes (Hospitalization)
  Sender: FDA-Public Use
  Company Number: PHHO2005JP13770

PATIENT
  Age: 75 Year
  Sex: Female
  Weight: 56 kg

DRUGS (5)
  1. DIOVAN [Suspect]
     Indication: HYPERTENSION
     Dosage: 80 MG, QD
     Route: 048
     Dates: start: 20030503, end: 20050809
  2. PROBUCOL [Suspect]
     Dosage: 250 MG, QD
     Route: 048
     Dates: start: 20000401, end: 20050809
  3. FLUTRIA [Suspect]
     Dosage: 1 MG, QD
     Route: 048
     Dates: start: 20040904
  4. FLUTRIA [Suspect]
     Dosage: 2 MG, QD
     Route: 048
     Dates: start: 20030613, end: 20040903
  5. FLUTRIA [Suspect]
     Dosage: 1 MG, QD
     Route: 048
     Dates: start: 20040904, end: 20050322

REACTIONS (2)
  - PANCYTOPENIA [None]
  - PURPURA [None]
